FAERS Safety Report 7861089-0 (Version None)
Quarter: 2011Q4

REPORT INFORMATION
  Report Type: 
  Country: None (occurrence: None)
  Receive Date: 20111027
  Receipt Date: 20111021
  Transmission Date: 20120403
  Serious: Yes (Other)
  Sender: FDA-Public Use
  Company Number: FR-TEVA-306506ISR

PATIENT
  Sex: Male

DRUGS (2)
  1. CITALOPRAM HYDROBROMIDE [Suspect]
     Route: 048
  2. AZILECT [Suspect]
     Route: 048
     Dates: start: 20100824

REACTIONS (1)
  - SUICIDE ATTEMPT [None]
